FAERS Safety Report 15020116 (Version 1)
Quarter: 2018Q2

REPORT INFORMATION
  Report Type: Spontaneous
  Country: AU (occurrence: AU)
  Receive Date: 20180618
  Receipt Date: 20180618
  Transmission Date: 20180711
  Serious: Yes (Other)
  Sender: FDA-Public Use
  Company Number: AU-ACCORD-068539

PATIENT
  Age: 69 Year
  Sex: Female

DRUGS (10)
  1. VALGANCICLOVIR/VALGANCICLOVIR HYDROCHLORIDE [Concomitant]
  2. GLICLAZIDE [Concomitant]
     Active Substance: GLICLAZIDE
  3. MYCOPHENOLIC ACID. [Suspect]
     Active Substance: MYCOPHENOLIC ACID
     Indication: IMMUNOSUPPRESSANT DRUG THERAPY
  4. BUDESONIDE. [Concomitant]
     Active Substance: BUDESONIDE
  5. PREDNISONE. [Suspect]
     Active Substance: PREDNISONE
     Indication: IMMUNOSUPPRESSANT DRUG THERAPY
  6. CALCITRIOL. [Concomitant]
     Active Substance: CALCITRIOL
  7. INSULIN [Concomitant]
     Active Substance: INSULIN NOS
  8. PANTOPRAZOLE [Concomitant]
     Active Substance: PANTOPRAZOLE
  9. ATORVASTATIN [Concomitant]
     Active Substance: ATORVASTATIN
  10. TACROLIMUS. [Suspect]
     Active Substance: TACROLIMUS
     Indication: IMMUNOSUPPRESSANT DRUG THERAPY

REACTIONS (2)
  - Fungal skin infection [Recovering/Resolving]
  - Staphylococcal infection [Recovering/Resolving]
